FAERS Safety Report 4955926-7 (Version None)
Quarter: 2006Q1

REPORT INFORMATION
  Report Type: 
  Country: None (occurrence: None)
  Receive Date: 20060327
  Receipt Date: 20060327
  Transmission Date: 20060701
  Serious: No
  Sender: FDA-Public Use
  Company Number: None

PATIENT

DRUGS (1)
  1. EPSOM SALT HUMCO [Suspect]
     Dosage: 2 CUPFULS PER GALLON OF WATER

REACTIONS (1)
  - MEDICATION ERROR [None]
